FAERS Safety Report 6748583-0 (Version None)
Quarter: 2010Q2

REPORT INFORMATION
  Report Type: 
  Country: None (occurrence: None)
  Receive Date: 20100601
  Receipt Date: 20100520
  Transmission Date: 20101027
  Serious: Yes (Hospitalization, Other)
  Sender: FDA-Public Use
  Company Number: US-BAYER-201014877NA

PATIENT
  Sex: Female

DRUGS (1)
  1. MIRENA [Suspect]
     Indication: DRUG USE FOR UNKNOWN INDICATION
     Dosage: MIRENA APPEARS AS IF ARMS OF MIRENA NEVER OPENED UP
     Route: 015
     Dates: start: 20081010, end: 20100209

REACTIONS (2)
  - INTRA-UTERINE CONTRACEPTIVE DEVICE REMOVAL [None]
  - PRODUCT SHAPE ISSUE [None]
